FAERS Safety Report 7749976 (Version 5)
Quarter: 2014Q1

REPORT INFORMATION
  Report Type: Spontaneous
  Country: US (occurrence: US)
  Receive Date: 20110106
  Receipt Date: 20140313
  Transmission Date: 20141002
  Serious: Yes (Hospitalization, Other)
  Sender: FDA-Public Use
  Company Number: US-BAYER-2011-001142

PATIENT
  Age: 24 Year
  Sex: Female
  Weight: 138.32 kg

DRUGS (5)
  1. YASMIN [Suspect]
     Indication: ACNE
     Dosage: UNK
     Dates: start: 200808, end: 200903
  2. YASMIN [Suspect]
     Indication: CONTRACEPTION
  3. IBUPROFEN [Concomitant]
  4. PROVENTIL [Concomitant]
     Dosage: 108 MCG
     Dates: start: 20081208
  5. KEFLEX [Concomitant]
     Dosage: 500 MG, UNK
     Route: 048
     Dates: start: 20090106

REACTIONS (4)
  - Cholecystitis chronic [None]
  - Gallbladder disorder [None]
  - Injury [None]
  - Pain [None]
